FAERS Safety Report 12773768 (Version 2)
Quarter: 2016Q4

REPORT INFORMATION
  Report Type: Report from Study
  Country: CN (occurrence: CN)
  Receive Date: 20160923
  Receipt Date: 20161125
  Transmission Date: 20170207
  Serious: Yes (Death, Other)
  Sender: FDA-Public Use
  Company Number: CN-ROCHE-1833716

PATIENT
  Age: 81 Year
  Sex: Male

DRUGS (2)
  1. ALTEPLASE [Suspect]
     Active Substance: ALTEPLASE
     Dosage: REMAINING 90% OVER 60 MINUTES
     Route: 042
  2. ALTEPLASE [Suspect]
     Active Substance: ALTEPLASE
     Indication: ISCHAEMIC STROKE
     Dosage: 0.9 MG/KG - 10% BOLUS IN 1 MINUTE
     Route: 040

REACTIONS (2)
  - Death [Fatal]
  - Haemorrhagic transformation stroke [Unknown]
